FAERS Safety Report 4434204-9 (Version None)
Quarter: 2004Q3

REPORT INFORMATION
  Report Type: 
  Country: None (occurrence: None)
  Receive Date: 20040825
  Receipt Date: 20040811
  Transmission Date: 20050211
  Serious: Yes (Death, Hospitalization)
  Sender: FDA-Public Use
  Company Number: EWC040539366

PATIENT
  Age: 65 Year
  Sex: Female

DRUGS (6)
  1. GEMCITABINE HYDROCHLORIDE              (GEMCITABINE) [Suspect]
     Indication: OVARIAN CANCER
     Dosage: 1100 MG/2 OTHER
     Route: 042
     Dates: start: 20040116
  2. DOXORUBICIN HCL [Concomitant]
  3. INTERFERON GAMMA-1B [Concomitant]
  4. CARBOPLATIN [Concomitant]
  5. PACLITAXEL [Concomitant]
  6. INDAPAMIDE [Concomitant]

REACTIONS (6)
  - DISEASE PROGRESSION [None]
  - ILEAL PERFORATION [None]
  - ILEUS PARALYTIC [None]
  - METASTATIC NEOPLASM [None]
  - PROCEDURAL COMPLICATION [None]
  - SMALL INTESTINE CARCINOMA METASTATIC [None]
